FAERS Safety Report 7873634-X (Version None)
Quarter: 2011Q4

REPORT INFORMATION
  Report Type: 
  Country: None (occurrence: None)
  Receive Date: 20111012
  Receipt Date: 20100818
  Transmission Date: 20120403
  Serious: No
  Sender: FDA-Public Use
  Company Number: 2010SP044732

PATIENT
  Age: 46 Year
  Sex: Female

DRUGS (6)
  1. ENOXAPARIN SODIUM [Concomitant]
  2. TEMODAR [Suspect]
     Indication: NEOPLASM MALIGNANT
     Dosage: 140 MG;QD;PO
     Route: 048
     Dates: start: 20100713, end: 20100809
  3. FOSAMAX [Concomitant]
  4. GASTRON [Concomitant]
  5. ZOCOR [Concomitant]
  6. DEXAMETHASONE [Concomitant]

REACTIONS (2)
  - HAEMOGLOBIN DECREASED [None]
  - RED BLOOD CELL COUNT DECREASED [None]
